FAERS Safety Report 6162584-5 (Version None)
Quarter: 2009Q2

REPORT INFORMATION
  Report Type: 
  Country: None (occurrence: None)
  Receive Date: 20090421
  Receipt Date: 20080703
  Transmission Date: 20091009
  Serious: No
  Sender: FDA-Public Use
  Company Number: US-ASTRAZENECA-2006UW04995

PATIENT
  Age: 81 Year
  Sex: Female
  Weight: 72.6 kg

DRUGS (9)
  1. CRESTOR [Suspect]
     Indication: BLOOD CHOLESTEROL INCREASED
     Route: 048
  2. CRESTOR [Suspect]
     Indication: HYPERCHOLESTEROLAEMIA
     Route: 048
  3. CRESTOR [Suspect]
     Route: 048
     Dates: start: 20070101
  4. CRESTOR [Suspect]
     Route: 048
     Dates: start: 20070101
  5. BENICAR [Concomitant]
  6. HYDROCHLOROTHIAZIDE [Concomitant]
  7. FOLGARD [Concomitant]
  8. NISEDECAL [Concomitant]
  9. COLAZAL [Concomitant]

REACTIONS (5)
  - ABDOMINAL PAIN [None]
  - BURNING SENSATION [None]
  - DIARRHOEA [None]
  - ILL-DEFINED DISORDER [None]
  - MYALGIA [None]
